FAERS Safety Report 18239975 (Version 5)
Quarter: 2020Q4

REPORT INFORMATION
  Report Type: Spontaneous
  Country: US (occurrence: US)
  Receive Date: 20200908
  Receipt Date: 20201221
  Transmission Date: 20210113
  Serious: No
  Sender: FDA-Public Use
  Company Number: US-GLAXOSMITHKLINE-US2020AMR176592

PATIENT
  Sex: Female

DRUGS (2)
  1. ZEJULA [Suspect]
     Active Substance: NIRAPARIB
     Dosage: 100 MG, QD
     Dates: start: 20200923
  2. ZEJULA [Suspect]
     Active Substance: NIRAPARIB
     Indication: OVARIAN CANCER
     Dosage: 200 MG, QD (QAM)
     Route: 065
     Dates: start: 20200827, end: 20200915

REACTIONS (8)
  - Asthenia [Not Recovered/Not Resolved]
  - Musculoskeletal discomfort [Unknown]
  - Constipation [Unknown]
  - Nausea [Unknown]
  - Drug monitoring procedure incorrectly performed [Unknown]
  - Adverse drug reaction [Recovered/Resolved]
  - Abdominal discomfort [Unknown]
  - Vomiting [Unknown]
